FAERS Safety Report 21364508 (Version 2)
Quarter: 2022Q4

REPORT INFORMATION
  Report Type: Spontaneous
  Country: US (occurrence: None)
  Receive Date: 20220922
  Receipt Date: 20221104
  Transmission Date: 20230113
  Serious: Yes (Death, Hospitalization)
  Sender: FDA-Public Use
  Company Number: 2022A323877

PATIENT
  Age: 23608 Day
  Sex: Male

DRUGS (2)
  1. EVUSHELD [Suspect]
     Active Substance: CILGAVIMAB\TIXAGEVIMAB
     Indication: Product used for unknown indication
     Dosage: FIRST DOSE OF EVUSHELD 300MG
     Route: 030
     Dates: start: 20220214
  2. EVUSHELD [Suspect]
     Active Substance: CILGAVIMAB\TIXAGEVIMAB
     Indication: Product used for unknown indication
     Dosage: SECOND DOSE OF 300MG
     Route: 030
     Dates: start: 20220405

REACTIONS (4)
  - COVID-19 [Fatal]
  - Pneumonia [Fatal]
  - Septic shock [Fatal]
  - Treatment failure [Fatal]

NARRATIVE: CASE EVENT DATE: 20220815
